FAERS Safety Report 8491723 (Version 4)
Quarter: 2013Q4

REPORT INFORMATION
  Report Type: Report from Study
  Country: CA (occurrence: CA)
  Receive Date: 20120403
  Receipt Date: 20131002
  Transmission Date: 20140711
  Serious: Yes (Hospitalization, Other)
  Sender: FDA-Public Use
  Company Number: CA-ROCHE-793296

PATIENT
  Age: 55 Year
  Sex: Male
  Weight: 138.8 kg

DRUGS (15)
  1. ACTEMRA [Suspect]
     Indication: RHEUMATOID ARTHRITIS
     Dosage: LAST DOSE : 18/JAN/2012
     Route: 042
  2. ACTEMRA [Suspect]
     Route: 042
     Dates: start: 20110627, end: 20120118
  3. SULFASALAZINE [Concomitant]
     Route: 065
  4. SITAGLIPTIN [Concomitant]
     Indication: DIABETES MELLITUS
     Route: 065
  5. RABEPRAZOLE [Concomitant]
     Route: 065
  6. METFORMIN [Concomitant]
     Route: 065
  7. CALCIUM CARBONATE [Concomitant]
     Route: 065
  8. FOLIC ACID [Concomitant]
     Route: 065
  9. HYDROXYCHLOROQUINE [Concomitant]
  10. PREDNISONE [Concomitant]
     Route: 065
  11. SALBUTAMOL [Concomitant]
     Route: 065
  12. DULOXETINE [Concomitant]
     Route: 065
  13. FLUCONAZOLE [Concomitant]
     Route: 065
  14. OXYCODONE [Concomitant]
  15. GLICLAZIDE [Concomitant]
     Route: 065

REACTIONS (12)
  - Pneumonia [Not Recovered/Not Resolved]
  - Myocardial infarction [Not Recovered/Not Resolved]
  - Intracardiac thrombus [Unknown]
  - Chronic obstructive pulmonary disease [Unknown]
  - Arthralgia [Not Recovered/Not Resolved]
  - Joint swelling [Not Recovered/Not Resolved]
  - Fatigue [Not Recovered/Not Resolved]
  - Nasopharyngitis [Unknown]
  - Cough [Unknown]
  - Furuncle [Unknown]
  - Infection [Unknown]
  - Drug effect decreased [Unknown]
